FAERS Safety Report 9344409 (Version 1)
Quarter: 2013Q2

REPORT INFORMATION
  Report Type: Spontaneous
  Country: JP (occurrence: JP)
  Receive Date: 20130612
  Receipt Date: 20130612
  Transmission Date: 20140414
  Serious: Yes (Hospitalization)
  Sender: FDA-Public Use
  Company Number: JP-BAYER-2013-062859

PATIENT
  Age: 82 Year
  Sex: Male
  Weight: 51 kg

DRUGS (13)
  1. GLUCOBAY [Suspect]
     Indication: TYPE 1 DIABETES MELLITUS
     Dosage: 100 MG, TID
     Route: 048
     Dates: start: 20120502, end: 20130118
  2. GLYCORAN [Concomitant]
     Indication: TYPE 1 DIABETES MELLITUS
     Dosage: 250 MG, TID
     Route: 048
     Dates: start: 20120502
  3. ACTOS [Concomitant]
     Indication: TYPE 1 DIABETES MELLITUS
     Dosage: 30 MG, QD
     Route: 048
     Dates: start: 20120502
  4. MICAMLO [Concomitant]
     Indication: HYPERTENSION
     Dosage: 1 DF, QD
     Route: 048
     Dates: start: 20111019
  5. BAYASPIRIN [Concomitant]
     Indication: CEREBRAL INFARCTION
     Dosage: 100 MG, QD
     Route: 048
     Dates: start: 20110921
  6. TAKEPRON [Concomitant]
     Indication: PROPHYLAXIS AGAINST GASTROINTESTINAL ULCER
     Dosage: 15 MG, QD
     Route: 048
     Dates: start: 20110921
  7. GLYCERIN [Concomitant]
     Dosage: DAILY DOSE 60 ML
     Route: 054
     Dates: start: 20130117
  8. DAIOKANZOTO [Concomitant]
     Dosage: DAILY DOSE 7.5 G
     Route: 048
     Dates: start: 20130117, end: 20130118
  9. DAIOKANZOTO [Concomitant]
     Dosage: UNK
     Route: 048
     Dates: start: 20130120
  10. SENNOSIDE [Concomitant]
     Dosage: DAILY DOSE 1 DF
     Route: 048
     Dates: start: 20130117, end: 20130118
  11. SENNOSIDE [Concomitant]
     Dosage: UNK
     Route: 048
     Dates: start: 20130120
  12. MAGNESIUM OXIDE [Concomitant]
     Dosage: DAILY DOSE 1 G
     Route: 048
     Dates: start: 20130117, end: 20130118
  13. MAGNESIUM OXIDE [Concomitant]
     Dosage: UNK
     Route: 048
     Dates: start: 20130120

REACTIONS (1)
  - Intestinal obstruction [Recovered/Resolved]
